FAERS Safety Report 6453376-8 (Version None)
Quarter: 2009Q4

REPORT INFORMATION
  Report Type: 
  Country: None (occurrence: None)
  Receive Date: 20091124
  Receipt Date: 20091113
  Transmission Date: 20100525
  Serious: Yes (Death)
  Sender: FDA-Public Use
  Company Number: US-ROCHE-663145

PATIENT
  Sex: Female

DRUGS (1)
  1. XELODA [Suspect]
     Indication: BILIARY CANCER METASTATIC
     Dosage: 7 DAYS ON AND 7 DAYS OFF
     Route: 048
     Dates: start: 20090801, end: 20090828

REACTIONS (2)
  - BILIARY CANCER METASTATIC [None]
  - MALIGNANT NEOPLASM PROGRESSION [None]
